FAERS Safety Report 9759259 (Version 1)
Quarter: 2013Q4

REPORT INFORMATION
  Report Type: Spontaneous
  Country: US (occurrence: US)
  Receive Date: 20131216
  Receipt Date: 20131216
  Transmission Date: 20140711
  Serious: No
  Sender: FDA-Public Use
  Company Number: US-009507513-1311USA012265

PATIENT
  Age: 57 Year
  Sex: Male
  Weight: 90.7 kg

DRUGS (3)
  1. VICTRELIS [Suspect]
     Dosage: TAKE 4 CAPSULES BY MOU1H 1HREE TIMES A DAY
     Route: 048
     Dates: start: 2013
  2. PEGASYS [Suspect]
  3. RIBATAB [Suspect]
     Route: 048

REACTIONS (2)
  - Rash generalised [Unknown]
  - Nausea [Unknown]
